FAERS Safety Report 8332339-1 (Version None)
Quarter: 2012Q2

REPORT INFORMATION
  Report Type: 
  Country: None (occurrence: None)
  Receive Date: 20120430
  Receipt Date: 20120413
  Transmission Date: 20120825
  Serious: Yes (Hospitalization)
  Sender: FDA-Public Use
  Company Number: TCI2012A02005

PATIENT
  Age: 73 Year
  Sex: Female

DRUGS (12)
  1. ACTOS [Suspect]
     Indication: TYPE 2 DIABETES MELLITUS
     Dosage: 15 MG (15 MG, 1 D) PER ORAL
     Route: 048
     Dates: start: 20101119
  2. LANTUS [Concomitant]
  3. LANSOPRAZOLE [Concomitant]
  4. NOVORAPID FLEXPEN (INSULIN ASPART) [Concomitant]
  5. CRESTOR [Concomitant]
  6. GLIMEPIRIDE [Concomitant]
  7. AMARYL [Concomitant]
  8. CILOSTAZOL [Concomitant]
  9. NIFELANTERN CR (NIFEDIPINE) [Concomitant]
  10. LEVOTHYROXINE SODIUM [Concomitant]
  11. BLOPRESS (CANDESARTAN CILEXETIL) [Concomitant]
  12. AMLODIPINE BESYLATE [Concomitant]

REACTIONS (2)
  - UPPER GASTROINTESTINAL HAEMORRHAGE [None]
  - HYPOGLYCAEMIA [None]
